FAERS Safety Report 18926047 (Version 2)
Quarter: 2021Q1

REPORT INFORMATION
  Report Type: Report from Study
  Country: US (occurrence: US)
  Receive Date: 20210223
  Receipt Date: 20210317
  Transmission Date: 20210420
  Serious: No
  Sender: FDA-Public Use
  Company Number: NVSC2021US035761

PATIENT
  Sex: Female

DRUGS (2)
  1. PIQRAY [Suspect]
     Active Substance: ALPELISIB
     Dosage: 300 MG
     Route: 048
     Dates: start: 20210209
  2. PIQRAY [Suspect]
     Active Substance: ALPELISIB
     Indication: BREAST CANCER METASTATIC
     Dosage: 300 MG, QD
     Route: 048
     Dates: start: 20210206

REACTIONS (9)
  - Decreased appetite [Not Recovered/Not Resolved]
  - Blood glucose fluctuation [Recovered/Resolved]
  - Rhinorrhoea [Not Recovered/Not Resolved]
  - Fatigue [Recovered/Resolved]
  - Product dose omission issue [Unknown]
  - Weight decreased [Not Recovered/Not Resolved]
  - Flushing [Recovered/Resolved]
  - Erythema [Recovered/Resolved]
  - Hyperglycaemia [Not Recovered/Not Resolved]
